FAERS Safety Report 7028911-1 (Version None)
Quarter: 2010Q4

REPORT INFORMATION
  Report Type: 
  Country: None (occurrence: None)
  Receive Date: 20101005
  Receipt Date: 20100909
  Transmission Date: 20110411
  Serious: Yes (Hospitalization)
  Sender: FDA-Public Use
  Company Number: NL-US-EMD SERONO, INC.-7019660

PATIENT
  Sex: Female
  Weight: 55 kg

DRUGS (6)
  1. REBIF [Suspect]
     Indication: MULTIPLE SCLEROSIS
     Route: 058
     Dates: start: 20000101
  2. ETHINYLESTRADIOL/LYNESTRENOL [Concomitant]
     Indication: CONTRACEPTION
  3. FLUOXETINE [Concomitant]
     Indication: DEPRESSION
     Dates: start: 20100801
  4. METOPROLOL [Concomitant]
     Indication: BLOOD PRESSURE
     Route: 048
     Dates: start: 20100601
  5. ZOPICLONE [Concomitant]
     Indication: INSOMNIA
     Dates: start: 20070101
  6. CALENDULA OITMENT [Concomitant]
     Indication: INJECTION SITE REACTION

REACTIONS (9)
  - ABDOMINAL PAIN UPPER [None]
  - DEPRESSION [None]
  - DIARRHOEA [None]
  - GASTROINTESTINAL DISORDER [None]
  - INJECTION SITE ERYTHEMA [None]
  - INJECTION SITE HAEMATOMA [None]
  - INJECTION SITE PAIN [None]
  - INJECTION SITE PRURITUS [None]
  - OESOPHAGEAL DISORDER [None]
